FAERS Safety Report 10993234 (Version 3)
Quarter: 2015Q3

REPORT INFORMATION
  Report Type: Spontaneous
  Country: JP (occurrence: JP)
  Receive Date: 20150407
  Receipt Date: 20150706
  Transmission Date: 20151125
  Serious: Yes (Death, Hospitalization)
  Sender: FDA-Public Use
  Company Number: JP-009507513-1503JPN015257

PATIENT
  Age: 66 Year
  Sex: Male
  Weight: 65 kg

DRUGS (8)
  1. MEROPEN [Suspect]
     Active Substance: MEROPENEM
     Indication: SEPSIS
     Dosage: 0.5 G, TID
     Route: 051
     Dates: start: 20140801, end: 20140812
  2. GRAN [Concomitant]
     Active Substance: FILGRASTIM
     Indication: NEUTROPENIA
     Dosage: 75 MICROGRAM, QD
     Route: 051
     Dates: start: 20140812, end: 20140815
  3. CANCIDAS [Suspect]
     Active Substance: CASPOFUNGIN ACETATE
     Indication: FUNGAEMIA
     Dosage: 50 MG, ONCE
     Route: 041
     Dates: start: 20140812, end: 20140812
  4. VFEND [Concomitant]
     Active Substance: VORICONAZOLE
     Indication: FUNGAEMIA
     Dosage: 400 MG, BID
     Route: 048
     Dates: start: 20140812, end: 20140813
  5. VFEND [Concomitant]
     Active Substance: VORICONAZOLE
     Dosage: 150 MG, BID
     Route: 048
     Dates: start: 20140813, end: 20140818
  6. VANCOMYCIN [Concomitant]
     Active Substance: VANCOMYCIN
     Indication: SEPSIS
     Dosage: 1 G, BID
     Route: 051
     Dates: start: 20140801, end: 20140812
  7. CEFTAZIDIME. [Concomitant]
     Active Substance: CEFTAZIDIME
     Indication: SEPSIS
     Dosage: 1 G, BID
     Route: 051
     Dates: start: 20140812, end: 20140820
  8. CANCIDAS [Suspect]
     Active Substance: CASPOFUNGIN ACETATE
     Indication: FUNGAEMIA
     Dosage: 70 MG, ONCE
     Route: 041
     Dates: start: 20140811, end: 20140811

REACTIONS (2)
  - Hepatic function abnormal [Fatal]
  - Infection [Fatal]

NARRATIVE: CASE EVENT DATE: 20140811
